FAERS Safety Report 20106578 (Version 2)
Quarter: 2021Q4

REPORT INFORMATION
  Report Type: Spontaneous
  Country: US (occurrence: US)
  Receive Date: 20211124
  Receipt Date: 20211125
  Transmission Date: 20220304
  Serious: No
  Sender: FDA-Public Use
  Company Number: US-ELI_LILLY_AND_COMPANY-US202111010347

PATIENT
  Age: 44 Year
  Sex: Male

DRUGS (1)
  1. TALTZ [Suspect]
     Active Substance: IXEKIZUMAB
     Indication: Psoriasis
     Dosage: 160 MG, SINGLE
     Route: 065
     Dates: start: 20211123

REACTIONS (3)
  - Injection site pustule [Recovered/Resolved]
  - Injection site haemorrhage [Recovered/Resolved]
  - Injection site swelling [Recovered/Resolved]

NARRATIVE: CASE EVENT DATE: 20211123
